FAERS Safety Report 6286419-5 (Version None)
Quarter: 2009Q3

REPORT INFORMATION
  Report Type: 
  Country: None (occurrence: None)
  Receive Date: 20090724
  Receipt Date: 20090710
  Transmission Date: 20100115
  Serious: Yes (Death)
  Sender: FDA-Public Use
  Company Number: 090715-0000820

PATIENT

DRUGS (6)
  1. COSMEGEN [Suspect]
     Indication: RHABDOMYOSARCOMA
  2. VINCRISTINE [Suspect]
     Indication: RHABDOMYOSARCOMA
  3. CYCLOPHOSPHAMIDE [Suspect]
     Indication: RHABDOMYOSARCOMA
  4. DOXORUBICIN HCL [Suspect]
     Indication: RHABDOMYOSARCOMA
  5. ETOPOSIDE [Suspect]
     Indication: RHABDOMYOSARCOMA
  6. IFOSFAMIDE [Suspect]
     Indication: RHABDOMYOSARCOMA

REACTIONS (1)
  - DEATH [None]
